FAERS Safety Report 10555724 (Version 2)
Quarter: 2014Q4

REPORT INFORMATION
  Report Type: Spontaneous
  Country: US (occurrence: US)
  Receive Date: 20141030
  Receipt Date: 20141030
  Transmission Date: 20150529
  Serious: No
  Sender: FDA-Public Use
  Company Number: US-009507513-1409USA000760

PATIENT
  Age: 34 Year
  Sex: Male
  Weight: 70.3 kg

DRUGS (16)
  1. ZOLOFT [Concomitant]
     Active Substance: SERTRALINE HYDROCHLORIDE
     Dosage: 100 MG, QD
  2. VERELAN [Concomitant]
     Active Substance: VERAPAMIL HYDROCHLORIDE
     Dosage: 240 MG, QD
  3. VITAMIN E [Concomitant]
     Active Substance: .ALPHA.-TOCOPHEROL
  4. XANAX [Concomitant]
     Active Substance: ALPRAZOLAM
     Dosage: (2-4) 4 MG, QD
  5. VICTRELIS [Suspect]
     Active Substance: BOCEPREVIR
     Indication: HEPATITIS C
     Dosage: 4 PILL, TID/2400 MG PER DAY
     Route: 048
     Dates: start: 20130625, end: 20130702
  6. RIBASPHERE [Suspect]
     Active Substance: RIBAVIRIN
     Indication: HEPATITIS C
     Dosage: 1000 MG, QD
     Dates: start: 20130625
  7. OMEGA-3 MARINE TRIGLYCERIDES [Concomitant]
     Active Substance: FISH OIL
  8. PEGASYS [Suspect]
     Active Substance: PEGINTERFERON ALFA-2A
     Indication: HEPATITIS C
     Dosage: 180, QW
     Dates: start: 20130625
  9. INTERFERON NOS [Suspect]
     Active Substance: INTERFERON
     Indication: HEPATITIS C
     Dosage: UNK
     Dates: start: 20130604
  10. CYANOCOBALAMIN. [Concomitant]
     Active Substance: CYANOCOBALAMIN
  11. VITAMIN D [Concomitant]
     Active Substance: CHOLECALCIFEROL
  12. PEGINTRON [Suspect]
     Active Substance: PEGINTERFERON ALFA-2B
     Indication: HEPATITIS C
  13. REBETOL [Suspect]
     Active Substance: RIBAVIRIN
     Indication: HEPATITIS C
     Dosage: UNK
     Dates: start: 20130604
  14. LOFIBRA [Concomitant]
     Active Substance: FENOFIBRATE
     Dosage: 160 MG, QD
  15. VICTRELIS [Suspect]
     Active Substance: BOCEPREVIR
     Indication: VIRAL LOAD UNDETECTABLE
  16. ASCORBIC ACID. [Concomitant]
     Active Substance: ASCORBIC ACID

REACTIONS (6)
  - Cheilitis [Unknown]
  - Subcutaneous abscess [Not Recovered/Not Resolved]
  - Onychomadesis [Not Recovered/Not Resolved]
  - Skin ulcer [Not Recovered/Not Resolved]
  - Onychomycosis [Unknown]
  - Lethargy [Unknown]

NARRATIVE: CASE EVENT DATE: 201306
